FAERS Safety Report 7132047-9 (Version None)
Quarter: 2010Q4

REPORT INFORMATION
  Report Type: 
  Country: None (occurrence: None)
  Receive Date: 20101202
  Receipt Date: 20101117
  Transmission Date: 20110411
  Serious: Yes (Disabling)
  Sender: FDA-Public Use
  Company Number: PHHY2010DE72522

PATIENT
  Sex: Male

DRUGS (1)
  1. GLIVEC [Suspect]
     Dosage: 400 MG DAILY
     Route: 048
     Dates: start: 20080101

REACTIONS (3)
  - BLINDNESS [None]
  - RETINAL ARTERY OCCLUSION [None]
  - VISUAL ACUITY REDUCED [None]
